FAERS Safety Report 12302843 (Version 2)
Quarter: 2016Q2

REPORT INFORMATION
  Report Type: Report from Study
  Country: US (occurrence: US)
  Receive Date: 20160426
  Receipt Date: 20160511
  Transmission Date: 20160815
  Serious: Yes (Other)
  Sender: FDA-Public Use
  Company Number: US-AMGEN-USASL2016050490

PATIENT
  Age: 65 Year
  Sex: Female
  Weight: 100.32 kg

DRUGS (1)
  1. REPATHA [Suspect]
     Active Substance: EVOLOCUMAB
     Indication: HYPERLIPIDAEMIA
     Dosage: 140 MG/ML, Q2WK
     Route: 065
     Dates: start: 20160322, end: 20160405

REACTIONS (10)
  - Glaucoma [Unknown]
  - Fatigue [Unknown]
  - Depression [Unknown]
  - Eye swelling [Recovered/Resolved]
  - Swelling [Unknown]
  - Swelling face [Recovered/Resolved]
  - Visual impairment [Unknown]
  - Eczema [Unknown]
  - Rhinorrhoea [Unknown]
  - Dry eye [Unknown]

NARRATIVE: CASE EVENT DATE: 20160425
